FAERS Safety Report 23885583 (Version 2)
Quarter: 2024Q2

REPORT INFORMATION
  Report Type: Spontaneous
  Country: US (occurrence: US)
  Receive Date: 20240522
  Receipt Date: 20240607
  Transmission Date: 20240715
  Serious: Yes (Hospitalization)
  Sender: FDA-Public Use
  Company Number: US-TEVA-VS-3200205

PATIENT
  Age: 27 Year
  Sex: Female

DRUGS (11)
  1. PROPOFOL [Suspect]
     Active Substance: PROPOFOL
     Indication: Sedative therapy
     Route: 065
  2. KETAMINE [Suspect]
     Active Substance: KETAMINE
     Indication: Sedative therapy
     Dosage: INFUSION (94 MG/HOUR) WAS ADMINISTERED AMOUNTING TO 1270MG KETAMINE DAILY DOSE ON DAY 5 OF KETAMI...
     Route: 065
  3. KETAMINE [Suspect]
     Active Substance: KETAMINE
     Indication: Sedative therapy
     Dosage: INFUSION ON DAY 2 OF REINTRODUCTION THERAPY
     Route: 065
  4. KETAMINE [Suspect]
     Active Substance: KETAMINE
     Indication: Sedative therapy
     Dosage: INFUSION ON DAY 4 OF REINTRODUCTION THERAPY
     Route: 065
  5. KETAMINE [Suspect]
     Active Substance: KETAMINE
     Indication: Sedative therapy
     Dosage: INFUSION ON DAY 8 OF INITIAL THERAPY
     Route: 065
  6. KETAMINE [Suspect]
     Active Substance: KETAMINE
     Indication: Sedative therapy
     Dosage: INFUSION ON DAY 1 OF INITIAL THERAPY
     Route: 065
  7. KETAMINE [Suspect]
     Active Substance: KETAMINE
     Indication: Sedative therapy
     Dosage: INFUSION ON FIRST DAY OF REINTRODUCTION
     Route: 065
  8. KETAMINE [Suspect]
     Active Substance: KETAMINE
     Indication: Sedative therapy
     Dosage: INFUSION ON DAY 3 OF REINTRODUCTION THERAPY
     Route: 065
  9. CISATRACURIUM [Concomitant]
     Active Substance: CISATRACURIUM
     Indication: Acute respiratory distress syndrome
     Route: 065
  10. DEXMEDETOMIDINE [Suspect]
     Active Substance: DEXMEDETOMIDINE
     Indication: Sedative therapy
     Route: 065
  11. FENTANYL [Concomitant]
     Active Substance: FENTANYL\FENTANYL CITRATE
     Indication: Sedative therapy
     Route: 065

REACTIONS (3)
  - Hypotension [Unknown]
  - Mixed liver injury [Recovered/Resolved]
  - Pyrexia [Unknown]
